FAERS Safety Report 8808123 (Version 1)
Quarter: 2012Q4

REPORT INFORMATION
  Report Type: 
  Country: US (occurrence: US)
  Receive Date: 20120925
  Receipt Date: 20120925
  Transmission Date: 20130627
  Serious: No
  Sender: FDA-Public Use
  Company Number: US-PFIZER INC-2012237147

PATIENT
  Age: 28 Year
  Sex: Female
  Weight: 63.49 kg

DRUGS (3)
  1. ZOLOFT [Suspect]
     Indication: PANIC ATTACK
     Dosage: 25 mg, 1x/day
     Route: 048
     Dates: start: 20120919
  2. ATIVAN [Concomitant]
     Dosage: UNK
  3. VALIUM [Concomitant]
     Indication: PANIC ATTACK
     Dosage: UNK

REACTIONS (3)
  - Erythema [Unknown]
  - Vascular skin disorder [Unknown]
  - Skin irritation [Unknown]
